FAERS Safety Report 5357187-6 (Version None)
Quarter: 2007Q2

REPORT INFORMATION
  Report Type: 
  Country: None (occurrence: None)
  Receive Date: 20070614
  Receipt Date: 20070606
  Transmission Date: 20071010
  Serious: Yes (Other)
  Sender: FDA-Public Use
  Company Number: US-JNJFOC-20070601861

PATIENT
  Sex: Female
  Weight: 57.61 kg

DRUGS (2)
  1. DURAGESIC-100 [Suspect]
     Dosage: 50MCG AND 25MCG PATCHES ALTERNATING FREQUENCY
     Route: 062
  2. DURAGESIC-100 [Suspect]
     Indication: PAIN
     Route: 062

REACTIONS (5)
  - BLINDNESS UNILATERAL [None]
  - DRUG EFFECT INCREASED [None]
  - INAPPROPRIATE SCHEDULE OF DRUG ADMINISTRATION [None]
  - INCORRECT DRUG ADMINISTRATION DURATION [None]
  - VISION BLURRED [None]
